FAERS Safety Report 6114956-2 (Version None)
Quarter: 2009Q1

REPORT INFORMATION
  Report Type: 
  Country: None (occurrence: None)
  Receive Date: 20090313
  Receipt Date: 20090305
  Transmission Date: 20090719
  Serious: Yes (Other)
  Sender: FDA-Public Use
  Company Number: JP-GENENTECH-277617

PATIENT
  Age: 24 Year
  Sex: Female

DRUGS (1)
  1. RITUXIMAB [Suspect]
     Indication: SYSTEMIC LUPUS ERYTHEMATOSUS
     Dosage: 1000 MG, Q14 DAYS PER TREATMENT COURSE
     Route: 042

REACTIONS (1)
  - MYELITIS TRANSVERSE [None]
